FAERS Safety Report 16327166 (Version 5)
Quarter: 2019Q4

REPORT INFORMATION
  Report Type: Report from Study
  Country: US (occurrence: US)
  Receive Date: 20190517
  Receipt Date: 20191223
  Transmission Date: 20200122
  Serious: No
  Sender: FDA-Public Use
  Company Number: US-SA-2019SA135235

PATIENT
  Age: 41 Year
  Sex: Female
  Weight: 76.92 kg

DRUGS (12)
  1. TERIFLUNOMIDE. [Suspect]
     Active Substance: TERIFLUNOMIDE
     Dosage: 14 UNK
     Route: 048
     Dates: start: 2019, end: 20190830
  2. EFFEXOR [Concomitant]
     Active Substance: VENLAFAXINE HYDROCHLORIDE
     Dosage: 1 DF, QD
  3. TERIFLUNOMIDE. [Suspect]
     Active Substance: TERIFLUNOMIDE
     Indication: MULTIPLE SCLEROSIS
     Dosage: 14 MG, QD
     Route: 048
     Dates: start: 20181217, end: 20190714
  4. CHERATUSSIN AC [Concomitant]
     Active Substance: CODEINE PHOSPHATE\GUAIFENESIN
     Dosage: UNK UNK, Q6H
     Route: 048
  5. DOXYCYCLINE HYCLATE. [Concomitant]
     Active Substance: DOXYCYCLINE HYCLATE
     Dosage: 1 DF, Q12H
     Route: 048
     Dates: start: 20190304
  6. IBUPROFEN. [Concomitant]
     Active Substance: IBUPROFEN
     Dosage: 3 DF, Q6H
     Route: 048
  7. VITAMIN D3 [Concomitant]
     Active Substance: CHOLECALCIFEROL
     Dosage: 1 DF, QD
     Dates: start: 20180604
  8. BIOTIN [Concomitant]
     Active Substance: BIOTIN
     Dosage: 1 DF, QD
     Route: 048
  9. ESTROGENS CONJUGATED;METHYLTESTOSTERONE [Concomitant]
     Dosage: 1 DF, QD
     Route: 048
  10. ONDANSETRON HYDROCHLORIDE. [Concomitant]
     Active Substance: ONDANSETRON HYDROCHLORIDE
     Dosage: 1 DF, QD
     Route: 048
  11. PANTOPRAZOLE SODIUM. [Concomitant]
     Active Substance: PANTOPRAZOLE SODIUM
     Dosage: 1 DF, QD
     Route: 048
  12. MAGNESIUM OXIDE. [Concomitant]
     Active Substance: MAGNESIUM OXIDE
     Dosage: 1 DF, QD
     Dates: start: 20190521

REACTIONS (4)
  - Hypersensitivity [Unknown]
  - Rash [Recovering/Resolving]
  - Eosinophil count increased [Unknown]
  - Nausea [Not Recovered/Not Resolved]

NARRATIVE: CASE EVENT DATE: 2019
